FAERS Safety Report 12338281 (Version 1)
Quarter: 2016Q2

REPORT INFORMATION
  Report Type: Spontaneous
  Country: FR (occurrence: FR)
  Receive Date: 20160505
  Receipt Date: 20160505
  Transmission Date: 20160815
  Serious: Yes (Hospitalization)
  Sender: FDA-Public Use
  Company Number: FR-GE HEALTHCARE MEDICAL DIAGNOSTICS-OMPQ-PR-1604S-0693

PATIENT
  Age: 2 Year
  Sex: Female

DRUGS (5)
  1. SABRIL [Concomitant]
     Active Substance: VIGABATRIN
  2. BACTRIM [Concomitant]
     Active Substance: SULFAMETHOXAZOLE\TRIMETHOPRIM
  3. HYDROCORTISONE. [Concomitant]
     Active Substance: HYDROCORTISONE
  4. OMNIPAQUE [Suspect]
     Active Substance: IOHEXOL
     Indication: BRONCHIAL DISORDER
     Dosage: DOSE NOT REPORTED
     Route: 042
     Dates: start: 20160216, end: 20160216
  5. OMNIPAQUE [Suspect]
     Active Substance: IOHEXOL
     Indication: DIAGNOSTIC PROCEDURE

REACTIONS (2)
  - Peripheral swelling [Recovered/Resolved]
  - Injection site extravasation [Recovered/Resolved]

NARRATIVE: CASE EVENT DATE: 20160216
